FAERS Safety Report 13807795 (Version 5)
Quarter: 2018Q1

REPORT INFORMATION
  Report Type: Spontaneous
  Country: JP (occurrence: JP)
  Receive Date: 20170728
  Receipt Date: 20180313
  Transmission Date: 20180508
  Serious: Yes (Death, Other)
  Sender: FDA-Public Use
  Company Number: JP-009507513-1707JPN000606J

PATIENT
  Age: 70 Year
  Sex: Male
  Weight: 40 kg

DRUGS (6)
  1. CYMBALTA [Concomitant]
     Active Substance: DULOXETINE HYDROCHLORIDE
     Indication: PROPHYLAXIS
     Dosage: 20 MICROGRAM, DAILY
     Route: 048
     Dates: end: 20170703
  2. UNITALC (STERILE TALC) [Concomitant]
     Active Substance: TALC
     Indication: SQUAMOUS CELL CARCINOMA OF LUNG
     Dosage: 4 G, DAILY
     Route: 051
     Dates: start: 20170523, end: 20170703
  3. OPSO [Concomitant]
     Active Substance: MORPHINE HYDROCHLORIDE
     Indication: SQUAMOUS CELL CARCINOMA OF LUNG
     Dosage: 5 MG, UNK
     Route: 048
     Dates: start: 20170616, end: 20170703
  4. PICIBANIL [Concomitant]
     Active Substance: OK-432
     Indication: SQUAMOUS CELL CARCINOMA OF LUNG
     Dosage: 0.5 MG, DAILY
     Route: 051
     Dates: start: 20170627, end: 20170703
  5. MORPHES [Concomitant]
     Indication: SQUAMOUS CELL CARCINOMA OF LUNG
     Dosage: 10 MICROGRAM, DAILY
     Route: 048
     Dates: start: 20170628, end: 20170703
  6. KEYTRUDA [Suspect]
     Active Substance: PEMBROLIZUMAB
     Indication: SQUAMOUS CELL CARCINOMA OF LUNG
     Dosage: 200 MG, EVERY 3 WEEK
     Route: 041
     Dates: start: 20170428, end: 20170630

REACTIONS (1)
  - Malignant neoplasm progression [Fatal]

NARRATIVE: CASE EVENT DATE: 20170703
